FAERS Safety Report 26069452 (Version 1)
Quarter: 2025Q4

REPORT INFORMATION
  Report Type: Spontaneous
  Country: JP (occurrence: JP)
  Receive Date: 20251120
  Receipt Date: 20251120
  Transmission Date: 20260118
  Serious: Yes (Hospitalization)
  Sender: MYLAN
  Company Number: JP-MYLANLABS-2025M1098139

PATIENT
  Age: 46 Year
  Sex: Female

DRUGS (4)
  1. ERYTHROCIN STEARATE [Suspect]
     Active Substance: ERYTHROMYCIN STEARATE
     Indication: Product used for unknown indication
     Dosage: 200 MILLIGRAM
  2. ERYTHROCIN STEARATE [Suspect]
     Active Substance: ERYTHROMYCIN STEARATE
     Dosage: 200 MILLIGRAM
     Route: 048
  3. ERYTHROCIN STEARATE [Suspect]
     Active Substance: ERYTHROMYCIN STEARATE
     Dosage: 200 MILLIGRAM
     Route: 048
  4. ERYTHROCIN STEARATE [Suspect]
     Active Substance: ERYTHROMYCIN STEARATE
     Dosage: 200 MILLIGRAM

REACTIONS (1)
  - Drug-induced liver injury [Unknown]
